FAERS Safety Report 8418272-5 (Version None)
Quarter: 2012Q2

REPORT INFORMATION
  Report Type: 
  Country: None (occurrence: None)
  Receive Date: 20120607
  Receipt Date: 20120528
  Transmission Date: 20120825
  Serious: Yes (Other)
  Sender: FDA-Public Use
  Company Number: IT-PERRIGO-12IT004673

PATIENT
  Age: 37 Year
  Sex: Male

DRUGS (1)
  1. MINOXIDIL [Suspect]
     Indication: ANDROGENETIC ALOPECIA
     Dosage: UNK, QD
     Route: 061

REACTIONS (1)
  - CHORIORETINOPATHY [None]
